FAERS Safety Report 7897871-3 (Version None)
Quarter: 2011Q4

REPORT INFORMATION
  Report Type: 
  Country: None (occurrence: None)
  Receive Date: 20111107
  Receipt Date: 20111031
  Transmission Date: 20120403
  Serious: Yes (Hospitalization, Other)
  Sender: FDA-Public Use
  Company Number: PHHY2011VE097105

PATIENT
  Sex: Female

DRUGS (11)
  1. GLUCOSAMINE [Concomitant]
     Indication: OSTEOPOROSIS
     Dosage: 500 MG, UNK
     Route: 048
  2. CALCORT [Concomitant]
     Indication: COUGH
     Dosage: UNK UKN, UNK
  3. ASCORBIC ACID [Concomitant]
     Dosage: UNK UKN, UNK
     Route: 048
  4. FORMOTEROL FUMARATE [Concomitant]
     Indication: ASTHMA
     Dosage: TWO INHALATIONS DAILY
     Dates: start: 20110101
  5. CELESTAMINE TAB [Concomitant]
     Indication: HYPERSENSITIVITY
     Dosage: 0.25 MG, UNK
  6. AMOXICILLIN AND CLAVULANATE POTASSIUM [Concomitant]
     Dosage: 875 MG, UNK
     Route: 048
     Dates: start: 20110101
  7. ZOLEDRONOC ACID [Suspect]
     Indication: OSTEOPOROSIS
     Dosage: 5 MG, YEARLY
     Route: 042
     Dates: start: 20101031
  8. DIOVAN [Concomitant]
     Indication: HYPERTENSION
     Dosage: 160 MG, UNK
     Route: 048
     Dates: start: 20110101
  9. LORATADINE [Concomitant]
     Indication: HYPERSENSITIVITY
     Dosage: UNK UKN, UNK
  10. VITAMIN A [Concomitant]
     Dosage: UNK UKN, UNK
  11. DOLGESIC [Concomitant]
     Indication: PAIN
     Dosage: UNK UKN, TID

REACTIONS (6)
  - INFECTION [None]
  - BLOOD PRESSURE ABNORMAL [None]
  - FACIAL PAIN [None]
  - FACE OEDEMA [None]
  - WOUND [None]
  - HYPERSENSITIVITY [None]
